FAERS Safety Report 4696643-0 (Version None)
Quarter: 2005Q2

REPORT INFORMATION
  Report Type: 
  Country: None (occurrence: None)
  Receive Date: 20050616
  Receipt Date: 20050413
  Transmission Date: 20051028
  Serious: No
  Sender: FDA-Public Use
  Company Number: BDI-007119

PATIENT
  Age: 85 Year
  Sex: Female
  Weight: 53 kg

DRUGS (3)
  1. MULTIHANCE [Suspect]
     Indication: AMNESIA
     Dosage: 20 ML ONCE IV
     Route: 042
     Dates: start: 20050401, end: 20050401
  2. MULTIHANCE [Suspect]
     Indication: ANGIOGRAM CEREBRAL
     Dosage: 20 ML ONCE IV
     Route: 042
     Dates: start: 20050401, end: 20050401
  3. MULTIHANCE [Suspect]
     Indication: PALPITATIONS
     Dosage: 20 ML ONCE IV
     Route: 042
     Dates: start: 20050401, end: 20050401

REACTIONS (6)
  - BLOOD PRESSURE SYSTOLIC DECREASED [None]
  - EYE ROLLING [None]
  - GROIN PAIN [None]
  - LOSS OF CONSCIOUSNESS [None]
  - PALPITATIONS [None]
  - PULSE ABNORMAL [None]
